FAERS Safety Report 20712540 (Version 1)
Quarter: 2022Q2

REPORT INFORMATION
  Report Type: Spontaneous
  Country: PK (occurrence: PK)
  Receive Date: 20220415
  Receipt Date: 20220415
  Transmission Date: 20220721
  Serious: Yes (Other)
  Sender: FDA-Public Use
  Company Number: PK-SUN PHARMACEUTICAL INDUSTRIES LTD-2022RR-332432

PATIENT
  Age: 47 Year
  Sex: Male

DRUGS (10)
  1. PIPERACILLIN SODIUM\TAZOBACTAM SODIUM [Suspect]
     Active Substance: PIPERACILLIN SODIUM\TAZOBACTAM SODIUM
     Indication: Respiratory symptom
     Dosage: 4.5 GRAM
     Route: 042
  2. AZITHROMYCIN [Suspect]
     Active Substance: AZITHROMYCIN
     Indication: Respiratory symptom
     Dosage: 500 MILLIGRAM, DAILY
     Route: 042
  3. VANCOMYCIN HYDROCHLORIDE [Suspect]
     Active Substance: VANCOMYCIN HYDROCHLORIDE
     Indication: Respiratory symptom
     Dosage: 1 GRAM, BID
     Route: 042
  4. OSELTAMIVIR [Suspect]
     Active Substance: OSELTAMIVIR
     Indication: Respiratory symptom
     Dosage: 75 MILLIGRAM, BID
     Route: 065
  5. EPINEPHRINE [Suspect]
     Active Substance: EPINEPHRINE
     Indication: Blood pressure measurement
     Dosage: 0.3 MICROGRAM/KILOGRAM/MIN
     Route: 065
  6. NOREPINEPHRINE [Suspect]
     Active Substance: NOREPINEPHRINE
     Indication: Blood pressure measurement
     Dosage: 12 MICROGRAM/KILOGRAM/MIN
     Route: 042
  7. VORICONAZOLE [Suspect]
     Active Substance: VORICONAZOLE
     Indication: Respiratory symptom
     Dosage: 240 MILLIGRAM, BID
     Route: 042
  8. FUROSEMIDE [Suspect]
     Active Substance: FUROSEMIDE
     Indication: Blood potassium increased
     Dosage: 80 MILLIGRAM
     Route: 042
  9. INSULIN NOS [Suspect]
     Active Substance: INSULIN NOS
     Indication: Blood potassium increased
     Dosage: 7 UNIT
     Route: 042
  10. SODIUM BICARBONATE [Suspect]
     Active Substance: SODIUM BICARBONATE
     Indication: Blood potassium increased
     Dosage: 50 MILLIEQUIVALENT
     Route: 042

REACTIONS (3)
  - Drug ineffective [Unknown]
  - Hyperkalaemia [Unknown]
  - Hyponatraemia [Unknown]
